FAERS Safety Report 5120841-5 (Version None)
Quarter: 2006Q4

REPORT INFORMATION
  Report Type: 
  Country: None (occurrence: None)
  Receive Date: 20061003
  Receipt Date: 20061003
  Transmission Date: 20070319
  Serious: Yes (Life-Threatening, Other)
  Sender: FDA-Public Use
  Company Number: None

PATIENT
  Age: 30 Year
  Sex: Male
  Weight: 81.1939 kg

DRUGS (1)
  1. ZYPREXA [Suspect]
     Indication: SELF-INJURIOUS IDEATION
     Dosage: ONCE EVERY NIGHT

REACTIONS (8)
  - ASTHENIA [None]
  - DRUG INEFFECTIVE [None]
  - HYPERSENSITIVITY [None]
  - PAIN [None]
  - RESTLESS LEGS SYNDROME [None]
  - SUICIDAL IDEATION [None]
  - TREMOR [None]
  - WEIGHT INCREASED [None]
